FAERS Safety Report 7322749-3 (Version None)
Quarter: 2011Q1

REPORT INFORMATION
  Report Type: 
  Country: None (occurrence: None)
  Receive Date: 20110216
  Receipt Date: 20110207
  Transmission Date: 20110831
  Serious: Yes (Death)
  Sender: FDA-Public Use
  Company Number: TAJPN-11-0118

PATIENT
  Age: 76 Year
  Sex: Female
  Weight: 65 kg

DRUGS (3)
  1. PREDNISOLONE [Concomitant]
  2. ACETAMINOPHEN [Concomitant]
  3. ABRAXANE [Suspect]
     Indication: BREAST CANCER METASTATIC
     Dosage: (416 MG)
     Dates: start: 20110202, end: 20110202

REACTIONS (8)
  - FALL [None]
  - HYPOPHAGIA [None]
  - GENERAL PHYSICAL CONDITION ABNORMAL [None]
  - DEHYDRATION [None]
  - CARDIO-RESPIRATORY ARREST [None]
  - WHITE BLOOD CELL COUNT DECREASED [None]
  - MELAENA [None]
  - HAEMOGLOBIN DECREASED [None]
